FAERS Safety Report 17519417 (Version 1)
Quarter: 2020Q1

REPORT INFORMATION
  Report Type: Spontaneous
  Country: US (occurrence: US)
  Receive Date: 20200310
  Receipt Date: 20200310
  Transmission Date: 20200409
  Serious: No
  Sender: FDA-Public Use
  Company Number: US-ALLERGAN-1940230US

PATIENT
  Age: 68 Year
  Sex: Female

DRUGS (4)
  1. ESTRACE [Suspect]
     Active Substance: ESTRADIOL
     Dosage: 1 GRAM TWICE PER WEEK
     Route: 067
     Dates: start: 20190823, end: 201909
  2. ESTRACE [Suspect]
     Active Substance: ESTRADIOL
     Dosage: 1 GRAM THREE TIMES PER WEEK
     Route: 067
     Dates: start: 2017, end: 2018
  3. ESTRACE [Suspect]
     Active Substance: ESTRADIOL
     Indication: MENOPAUSAL DISORDER
     Dosage: 1 GRAM THREE TIMES PER WEEK
     Route: 067
     Dates: start: 20190922
  4. ESTRACE [Suspect]
     Active Substance: ESTRADIOL
     Dosage: 1 GRAM THREE TIMES PER WEEK
     Route: 067
     Dates: end: 20190823

REACTIONS (4)
  - Pain of skin [Recovering/Resolving]
  - Therapy cessation [Unknown]
  - Alopecia [Not Recovered/Not Resolved]
  - Inappropriate schedule of product administration [Unknown]

NARRATIVE: CASE EVENT DATE: 2019
